FAERS Safety Report 5477629-5 (Version None)
Quarter: 2007Q4

REPORT INFORMATION
  Report Type: 
  Country: None (occurrence: None)
  Receive Date: 20071002
  Receipt Date: 20070918
  Transmission Date: 20080405
  Serious: Yes (Hospitalization)
  Sender: FDA-Public Use
  Company Number: 2005US001662

PATIENT
  Age: 43 Year
  Sex: Female

DRUGS (2)
  1. TACROLIMUS [Suspect]
     Indication: RENAL TRANSPLANT
     Dates: start: 20051030
  2. CORTICOSTEROIDS [Suspect]
     Indication: RENAL TRANSPLANT
     Dosage: 17.5, UID/QD, ORAL
     Route: 048
     Dates: start: 20051106

REACTIONS (3)
  - FIBRIN D DIMER INCREASED [None]
  - PULMONARY EMBOLISM [None]
  - RESPIRATORY ACIDOSIS [None]
